FAERS Safety Report 24778960 (Version 3)
Quarter: 2025Q3

REPORT INFORMATION
  Report Type: Spontaneous
  Country: RS (occurrence: RS)
  Receive Date: 20241226
  Receipt Date: 20250809
  Transmission Date: 20251020
  Serious: Yes (Hospitalization)
  Sender: ALEXION PHARMACEUTICALS
  Company Number: RS-ASTRAZENECA-202412BKN009903RS

PATIENT
  Sex: Male
  Weight: 84 kg

DRUGS (13)
  1. SYMBICORT [Suspect]
     Active Substance: BUDESONIDE\FORMOTEROL FUMARATE DIHYDRATE
  2. AMOXICILLIN [Concomitant]
     Active Substance: AMOXICILLIN
     Route: 065
  3. PROBIOTICS NOS [Concomitant]
     Active Substance: PROBIOTICS NOS
     Route: 065
  4. THEOPHYLLINE [Concomitant]
     Active Substance: THEOPHYLLINE
     Route: 065
  5. FENOTEROL [Concomitant]
     Active Substance: FENOTEROL
     Route: 065
  6. ASPIRIN [Concomitant]
     Active Substance: ASPIRIN
     Route: 065
  7. BISOPROLOL [Concomitant]
     Active Substance: BISOPROLOL
     Route: 065
  8. FOSINOPRIL [Concomitant]
     Active Substance: FOSINOPRIL
     Dosage: 20 MILLIGRAM, QD
     Route: 065
  9. Fosinopril hydrochlorothiazide biogaran [Concomitant]
     Dosage: 1 DOSAGE FORM, QD
     Route: 065
  10. Albumin human;Furosemide sodium [Concomitant]
     Route: 065
  11. FLUTICASONE [Concomitant]
     Active Substance: FLUTICASONE
     Route: 065
  12. CETIRIZINE HYDROCHLORIDE [Concomitant]
     Active Substance: CETIRIZINE HYDROCHLORIDE
     Route: 065
  13. PSEUDOEPHEDRINE [Concomitant]
     Active Substance: PSEUDOEPHEDRINE
     Route: 065

REACTIONS (5)
  - Asthma [Unknown]
  - Dyspnoea [Unknown]
  - Cough [Unknown]
  - Haemoptysis [Unknown]
  - Breath sounds abnormal [Unknown]
